FAERS Safety Report 9437217 (Version 3)
Quarter: 2013Q3

REPORT INFORMATION
  Report Type: Spontaneous
  Country: IT (occurrence: IT)
  Receive Date: 20130802
  Receipt Date: 20130813
  Transmission Date: 20140515
  Serious: Yes (Death, Other)
  Sender: FDA-Public Use
  Company Number: PHHY2013IT081967

PATIENT
  Sex: Male

DRUGS (13)
  1. ZOMETA [Suspect]
     Indication: PROSTATE CANCER
     Dosage: 4 MG, MONTHLY
     Route: 042
     Dates: start: 20110816
  2. ZOMETA [Suspect]
     Dosage: UNK UKN, UNK
     Dates: start: 201209, end: 20121217
  3. CASODEX [Suspect]
     Dosage: UNK UKN, UNK
     Dates: end: 20120301
  4. TAXOTERE [Suspect]
     Dosage: UNK UKN, UNK
  5. JEVTANA [Suspect]
     Indication: PROSTATE CANCER
     Dosage: 25 MG/M2 (BODY SURFACE), UNK
     Route: 042
  6. JEVTANA [Suspect]
     Dosage: 25 MG/M2 EVERY THREE WEEKS
     Dates: start: 201209, end: 201212
  7. PREDNISONE [Concomitant]
     Dosage: 10 MG, UNK
     Route: 048
     Dates: start: 20120301, end: 20130721
  8. LANSOPRAZOLE [Concomitant]
     Dosage: 30 MG, UNK
     Route: 048
  9. ALLOPURINOL [Concomitant]
     Dosage: 300 MG, UNK
     Route: 048
  10. TAMSULOSINE [Concomitant]
     Dosage: 0.4 MG, UNK
     Route: 048
  11. ACETYLSALICYLIC ACID [Concomitant]
     Dosage: 100 MG, UNK
     Route: 048
  12. CALCIUM GLUCONATE [Concomitant]
     Dosage: 1 G, UNK
  13. OXYCODONE [Concomitant]
     Dosage: 20 MG, UNK

REACTIONS (4)
  - Death [Fatal]
  - Osteonecrosis of jaw [Recovering/Resolving]
  - Prostate cancer metastatic [Unknown]
  - Malignant neoplasm progression [Unknown]
